FAERS Safety Report 14806896 (Version 2)
Quarter: 2018Q2

REPORT INFORMATION
  Report Type: Spontaneous
  Country: FR (occurrence: FR)
  Receive Date: 20180425
  Receipt Date: 20180605
  Transmission Date: 20180711
  Serious: Yes (Hospitalization, Other)
  Sender: FDA-Public Use
  Company Number: FR-PFIZER INC-2018159644

PATIENT
  Age: 67 Year
  Sex: Male
  Weight: 55 kg

DRUGS (15)
  1. ALIMTA [Suspect]
     Active Substance: PEMETREXED DISODIUM
     Indication: LUNG ADENOCARCINOMA
     Dosage: 900 MG (AT THE FIRST TREATMENT)
     Route: 041
     Dates: start: 20180124, end: 20180214
  2. CARBOPLATIN. [Suspect]
     Active Substance: CARBOPLATIN
     Indication: LUNG ADENOCARCINOMA
     Dosage: 550 MG, CYCLIC
     Route: 041
     Dates: start: 20180214, end: 20180214
  3. ALIMTA [Suspect]
     Active Substance: PEMETREXED DISODIUM
     Dosage: 850 MG (AT THE 2ND TREATMENT)
     Route: 041
     Dates: start: 20180124, end: 20180214
  4. EMEND [Concomitant]
     Active Substance: APREPITANT
     Indication: PROPHYLAXIS OF NAUSEA AND VOMITING
     Dosage: 80 MG AT D + 1 AND D + 2 OF THE CHEMOTHERAPY
     Route: 048
     Dates: start: 20180125
  5. VITAMINE B12 AGUETTANT [Concomitant]
     Active Substance: CYANOCOBALAMIN
     Dosage: 1 DF, CYCLIC(ONCE EVENY 9 WEEKS)
     Route: 048
     Dates: start: 20180118
  6. CISPLATINE TEVA [Suspect]
     Active Substance: CISPLATIN
     Indication: LUNG ADENOCARCINOMA
     Dosage: 135 MG, CYCLIC
     Route: 041
     Dates: start: 20180124, end: 20180124
  7. PREDNISOLONE BIOGARAN [Concomitant]
     Active Substance: PREDNISOLONE
     Dosage: 1.5 TABLETS MORNING AND EVENING AND THE DAY OF THE CHEMOTHERAPY, 2 IN THE MORNING AND 1 IN EVENING
     Route: 048
     Dates: start: 20180123
  8. INNOHEP [Concomitant]
     Active Substance: TINZAPARIN SODIUM
     Indication: DEEP VEIN THROMBOSIS
     Dosage: 1 DOSAGE FORMS DAILY
     Route: 058
  9. SERETIDE [Concomitant]
     Active Substance: FLUTICASONE PROPIONATE\SALMETEROL XINAFOATE
     Indication: ASTHMA
     Dosage: 2 DOSAGE FORMS DAILY
     Route: 055
     Dates: start: 20171115
  10. KARDEGIC [Concomitant]
     Active Substance: ASPIRIN DL-LYSINE
     Indication: DEEP VEIN THROMBOSIS
     Dosage: 75 MILLIGRAM DAILY
     Route: 048
     Dates: start: 20180123
  11. ACIDE FOLIQUE [Concomitant]
     Active Substance: FOLIC ACID
     Dosage: 0.4 MILLIGRAM DAILY
     Route: 048
     Dates: start: 20180119
  12. METOCLOPRAMIDE. [Concomitant]
     Active Substance: METOCLOPRAMIDE
     Indication: PROPHYLAXIS OF NAUSEA AND VOMITING
     Dosage: 10 MG, AS NEEDED
     Route: 048
     Dates: start: 20180118
  13. DAFALGAN CODEINE [Concomitant]
     Active Substance: ACETAMINOPHEN\CODEINE PHOSPHATE
     Indication: PAIN
     Dosage: 1 DF, AS NEEDED
     Route: 048
     Dates: start: 20180118
  14. ELIQUIS [Concomitant]
     Active Substance: APIXABAN
     Indication: ATRIAL FIBRILLATION
     Dosage: 10 MILLIGRAM DAILY
     Route: 048
     Dates: start: 20180124
  15. BISOPROLOL BIOGARAN [Concomitant]
     Active Substance: BISOPROLOL FUMARATE
     Indication: ATRIAL FIBRILLATION
     Dosage: 1.25 MILLIGRAM DAILY
     Route: 048
     Dates: start: 20180124

REACTIONS (3)
  - Febrile neutropenia [Unknown]
  - Rash [Not Recovered/Not Resolved]
  - Enteritis [Not Recovered/Not Resolved]

NARRATIVE: CASE EVENT DATE: 20180130
